FAERS Safety Report 8893616 (Version 7)
Quarter: 2013Q1

REPORT INFORMATION
  Report Type: Spontaneous
  Country: TW (occurrence: TW)
  Receive Date: 20121108
  Receipt Date: 20130325
  Transmission Date: 20140127
  Serious: Yes (Death)
  Sender: FDA-Public Use
  Company Number: TW-JNJFOC-20121015635

PATIENT
  Age: 45 Year
  Sex: Female

DRUGS (13)
  1. RISPERDAL CONSTA [Suspect]
     Indication: SCHIZOPHRENIA
     Dosage: RECEIVED INJECTION AROUND 4 PM
     Route: 030
     Dates: start: 201201
  2. RISPERDAL CONSTA [Suspect]
     Indication: SCHIZOPHRENIA
     Dosage: Q2W
     Route: 030
     Dates: start: 2008
  3. RISPERDAL CONSTA [Suspect]
     Indication: SCHIZOPHRENIA
     Route: 030
     Dates: start: 2010, end: 201201
  4. RISPERIDONE [Suspect]
     Indication: SCHIZOPHRENIA
     Dosage: 4MG-6MG PER DAY
     Route: 048
     Dates: start: 1999, end: 2000
  5. RISPERIDONE [Suspect]
     Indication: SCHIZOPHRENIA
     Route: 048
  6. ZYPREXA [Suspect]
     Indication: SCHIZOPHRENIA
     Route: 065
  7. GEODONE [Suspect]
     Indication: SCHIZOPHRENIA
     Route: 065
  8. SOLIAN [Suspect]
     Indication: SCHIZOPHRENIA
     Route: 065
     Dates: start: 2001, end: 2006
  9. FLUANXOL [Suspect]
     Indication: SCHIZOPHRENIA
     Dosage: DEPOT 1 AMPOULE ONCE EVERY 2 WEEKS
     Route: 065
  10. CLOZAPINE [Suspect]
     Indication: SCHIZOPHRENIA
     Route: 065
     Dates: start: 200608, end: 200612
  11. INDERAL [Concomitant]
     Indication: PRODUCT USED FOR UNKNOWN INDICATION
     Route: 065
  12. ARTANE [Concomitant]
     Indication: PRODUCT USED FOR UNKNOWN INDICATION
     Route: 065
  13. SUWELL [Concomitant]
     Indication: GASTROINTESTINAL DISORDER
     Route: 065

REACTIONS (9)
  - Sudden death [Fatal]
  - Abdominal pain [Fatal]
  - Extrapyramidal disorder [Unknown]
  - Tardive dyskinesia [Unknown]
  - Gastric ulcer [Unknown]
  - Protrusion tongue [Unknown]
  - Dyskinesia [Unknown]
  - Loss of consciousness [Unknown]
  - Treatment noncompliance [Unknown]
